FAERS Safety Report 12316149 (Version 2)
Quarter: 2016Q2

REPORT INFORMATION
  Report Type: Report from Study
  Country: US (occurrence: PH)
  Receive Date: 20160428
  Receipt Date: 20160503
  Transmission Date: 20160815
  Serious: Yes (Death, Other)
  Sender: FDA-Public Use
  Company Number: US-BRISTOL-MYERS SQUIBB COMPANY-BMS-2016-032340

PATIENT
  Age: 29 Year
  Sex: Male

DRUGS (1)
  1. ARIPIPRAZOLE. [Suspect]
     Active Substance: ARIPIPRAZOLE
     Indication: AFFECTIVE DISORDER
     Dosage: UNK
     Route: 065
     Dates: start: 20160106

REACTIONS (6)
  - Suicidal ideation [Unknown]
  - Depression [Recovered/Resolved]
  - Asthenia [Unknown]
  - Apathy [Unknown]
  - Death [Fatal]
  - Off label use [Unknown]

NARRATIVE: CASE EVENT DATE: 20160224
